FAERS Safety Report 5829782-9 (Version None)
Quarter: 2008Q3

REPORT INFORMATION
  Report Type: 
  Country: None (occurrence: None)
  Receive Date: 20080801
  Receipt Date: 20080718
  Transmission Date: 20090109
  Serious: Yes (Hospitalization)
  Sender: FDA-Public Use
  Company Number: FR-JNJFOC-20080704468

PATIENT
  Age: 93 Year
  Sex: Female

DRUGS (7)
  1. RISPERDAL [Suspect]
     Indication: DRUG USE FOR UNKNOWN INDICATION
     Route: 048
  2. NOCTRAN [Concomitant]
  3. PREVISCAN [Concomitant]
  4. TAREG [Concomitant]
  5. HEMIGOXINE [Concomitant]
  6. ALLOPURINOL [Concomitant]
  7. ACEPROMAZINE [Concomitant]

REACTIONS (3)
  - HAEMOLYTIC ANAEMIA [None]
  - THROMBOCYTOPENIA [None]
  - THROMBOTIC MICROANGIOPATHY [None]
